FAERS Safety Report 18560362 (Version 1)
Quarter: 2020Q4

REPORT INFORMATION
  Report Type: Spontaneous
  Country: JE (occurrence: JE)
  Receive Date: 20201130
  Receipt Date: 20201130
  Transmission Date: 20210114
  Serious: Yes (Other)
  Sender: FDA-Public Use
  Company Number: JE-GLAXOSMITHKLINE-JE2020EME201743

PATIENT
  Sex: Female

DRUGS (1)
  1. WELLVONE [Suspect]
     Active Substance: ATOVAQUONE
     Indication: PNEUMOCYSTIS JIROVECII PNEUMONIA
     Dosage: 5 ML, BID TWICE A DAY
     Route: 048
     Dates: start: 20190222

REACTIONS (4)
  - Condition aggravated [Recovered/Resolved]
  - Pneumocystis jirovecii pneumonia [Recovered/Resolved]
  - Chest pain [Recovered/Resolved]
  - Therapeutic product effect decreased [Unknown]
